FAERS Safety Report 4374897-8 (Version None)
Quarter: 2004Q2

REPORT INFORMATION
  Report Type: 
  Country: None (occurrence: None)
  Receive Date: 20040609
  Receipt Date: 20040519
  Transmission Date: 20050107
  Serious: Yes (Death)
  Sender: FDA-Public Use
  Company Number: PHBS2004JP06640

PATIENT
  Age: 69 Year
  Sex: Female

DRUGS (4)
  1. CYCLOSPORINE [Suspect]
     Indication: RENAL TRANSPLANT
     Route: 065
     Dates: start: 19880101
  2. MIZORIBINE [Suspect]
  3. AZATHIOPRINE [Suspect]
  4. PREDNISOLONE [Suspect]

REACTIONS (14)
  - ALPHA 1 FOETOPROTEIN INCREASED [None]
  - ANTI-HBS ANTIBODY POSITIVE [None]
  - ASCITES [None]
  - BLOOD CREATININE INCREASED [None]
  - BLOOD UREA INCREASED [None]
  - CONJUNCTIVAL DISCOLOURATION [None]
  - HBV-DNA POLYMERASE INCREASED [None]
  - HEPATIC FUNCTION ABNORMAL [None]
  - HEPATIC NEOPLASM MALIGNANT NON-RESECTABLE [None]
  - HEPATITIS B [None]
  - HYPOPROTEINAEMIA [None]
  - MALAISE [None]
  - PANCYTOPENIA [None]
  - PROTHROMBIN TIME PROLONGED [None]
